FAERS Safety Report 7117631-0 (Version None)
Quarter: 2010Q4

REPORT INFORMATION
  Report Type: 
  Country: None (occurrence: None)
  Receive Date: 20101122
  Receipt Date: 20101111
  Transmission Date: 20110411
  Serious: Yes (Other)
  Sender: FDA-Public Use
  Company Number: FR-AMGEN-FRASP2010004117

PATIENT

DRUGS (6)
  1. ENBREL [Suspect]
     Indication: PRODUCT USED FOR UNKNOWN INDICATION
     Dosage: 50 MG, WEEKLY
     Route: 058
     Dates: start: 20100619, end: 20100716
  2. RIMIFON [Concomitant]
     Indication: TUBERCULIN TEST POSITIVE
     Dosage: 150 MG, 2X/DAY
     Dates: start: 20100301
  3. METHOTREXATE [Concomitant]
     Dosage: 2.5 MG, 8 TABLETS PER WEEK
     Dates: start: 19950101
  4. SPECIAFOLDINE [Concomitant]
     Dosage: 5 MG, 4 PER WEEK
     Dates: start: 20030101
  5. APRANAX [Concomitant]
     Dosage: 1/DAY IF NEEDED
     Dates: start: 20070101
  6. IXPRIM [Concomitant]
     Dosage: UNK UNK, PRN
     Dates: start: 20080101

REACTIONS (1)
  - NEUROPATHY PERIPHERAL [None]
